FAERS Safety Report 4558017-2 (Version None)
Quarter: 2005Q1

REPORT INFORMATION
  Report Type: 
  Country: None (occurrence: None)
  Receive Date: 20050121
  Receipt Date: 20040521
  Transmission Date: 20050727
  Serious: No
  Sender: FDA-Public Use
  Company Number: US-BRISTOL-MYERS SQUIBB COMPANY-12594099

PATIENT
  Age: 57 Year
  Sex: Female
  Weight: 76 kg

DRUGS (5)
  1. SERZONE [Suspect]
     Indication: ANXIETY
     Route: 048
     Dates: start: 20010101
  2. SERZONE [Suspect]
     Indication: DEPRESSION
     Route: 048
     Dates: start: 20010101
  3. SEREVENT [Concomitant]
  4. RHINOCORT [Concomitant]
  5. LEVOXYL [Concomitant]

REACTIONS (1)
  - ANXIETY [None]
